FAERS Safety Report 7730484-2 (Version None)
Quarter: 2011Q3

REPORT INFORMATION
  Report Type: 
  Country: None (occurrence: None)
  Receive Date: 20110906
  Receipt Date: 20110829
  Transmission Date: 20111222
  Serious: Yes (Other)
  Sender: FDA-Public Use
  Company Number: US-ABBOTT-11P-163-0850626-00

PATIENT
  Sex: Female

DRUGS (1)
  1. HUMIRA [Suspect]
     Indication: RHEUMATOID ARTHRITIS
     Dates: start: 20110501, end: 20110528

REACTIONS (4)
  - NASOPHARYNGITIS [None]
  - RECTAL HAEMORRHAGE [None]
  - CORONARY ANGIOPLASTY [None]
  - BRONCHITIS [None]
